FAERS Safety Report 6551367-X (Version None)
Quarter: 2010Q1

REPORT INFORMATION
  Report Type: 
  Country: None (occurrence: None)
  Receive Date: 20100126
  Receipt Date: 20100121
  Transmission Date: 20100710
  Serious: Yes (Hospitalization)
  Sender: FDA-Public Use
  Company Number: US-ALLERGAN-0915543US

PATIENT
  Age: 29 Year
  Sex: Female
  Weight: 39.002 kg

DRUGS (1)
  1. BOTOX [Suspect]
     Indication: DRUG USE FOR UNKNOWN INDICATION
     Dosage: 400 UNITS, SINGLE
     Route: 030
     Dates: start: 20090813, end: 20090813

REACTIONS (4)
  - HYPERTHERMIA [None]
  - PNEUMONIA [None]
  - RESPIRATORY FAILURE [None]
  - SEPSIS [None]
